FAERS Safety Report 5674623-6 (Version None)
Quarter: 2008Q1

REPORT INFORMATION
  Report Type: 
  Country: None (occurrence: None)
  Receive Date: 20080319
  Receipt Date: 20080319
  Transmission Date: 20080703
  Serious: Yes (Hospitalization)
  Sender: FDA-Public Use
  Company Number: None

PATIENT
  Age: 56 Year
  Sex: Female
  Weight: 66.2252 kg

DRUGS (1)
  1. GADOLINIUM [Suspect]

REACTIONS (8)
  - ANORECTAL DISCOMFORT [None]
  - CHEST PAIN [None]
  - PRURITUS [None]
  - SPUTUM ABNORMAL [None]
  - THROAT TIGHTNESS [None]
  - URTICARIA [None]
  - VOMITING [None]
  - VULVOVAGINAL BURNING SENSATION [None]
